FAERS Safety Report 21907914 (Version 2)
Quarter: 2023Q1

REPORT INFORMATION
  Report Type: Spontaneous
  Country: IE (occurrence: IE)
  Receive Date: 20230125
  Receipt Date: 20230303
  Transmission Date: 20230417
  Serious: Yes (Other)
  Sender: FDA-Public Use
  Company Number: IE-HPRA-2023-102143

PATIENT
  Age: 49 Year
  Sex: Male

DRUGS (2)
  1. RINVOQ [Suspect]
     Active Substance: UPADACITINIB
     Indication: Psoriatic arthropathy
     Dosage: FROM STRENGTH: 15 MG
     Route: 048
     Dates: start: 20221206, end: 20230105
  2. TRAZODONE HYDROCHLORIDE [Concomitant]
     Active Substance: TRAZODONE HYDROCHLORIDE
     Indication: Insomnia
     Dosage: DAILY DOSAGE: 100 MG??FROM STRENGTH:  50 MG
     Dates: start: 20200804, end: 20230111

REACTIONS (1)
  - Rash erythematous [Recovered/Resolved]

NARRATIVE: CASE EVENT DATE: 20230105
